FAERS Safety Report 9862144 (Version 1)
Quarter: 2014Q1

REPORT INFORMATION
  Report Type: Spontaneous
  Country: US (occurrence: US)
  Receive Date: 20140203
  Receipt Date: 20140203
  Transmission Date: 20141002
  Serious: No
  Sender: FDA-Public Use
  Company Number: US-OPTIMER-20130409

PATIENT
  Sex: Female

DRUGS (7)
  1. DIFICID [Suspect]
     Indication: CLOSTRIDIUM DIFFICILE COLITIS
     Dosage: 200 MG, BID
     Route: 048
     Dates: start: 20130920, end: 20130930
  2. ASPIRIN [Concomitant]
     Dosage: UNK
     Route: 065
  3. ATENOLOL [Concomitant]
     Dosage: UNK
     Route: 065
  4. PRADAXA [Concomitant]
     Dosage: UNK
     Route: 065
  5. VANCOMYCIN [Concomitant]
     Indication: CLOSTRIDIUM DIFFICILE COLITIS
     Dosage: UNK
     Route: 048
  6. VYTORIN [Concomitant]
     Dosage: UNK
     Route: 065
  7. ENALAPRIL [Concomitant]
     Dosage: UNK
     Route: 065

REACTIONS (2)
  - Clostridium difficile colitis [Not Recovered/Not Resolved]
  - Disease recurrence [Not Recovered/Not Resolved]
